FAERS Safety Report 6007162-3 (Version None)
Quarter: 2008Q4

REPORT INFORMATION
  Report Type: 
  Country: None (occurrence: None)
  Receive Date: 20081217
  Receipt Date: 20071213
  Transmission Date: 20090506
  Serious: No
  Sender: FDA-Public Use
  Company Number: US-AMGEN-KDL255858

PATIENT
  Sex: Female
  Weight: 72.6 kg

DRUGS (5)
  1. ENBREL [Suspect]
     Indication: PSORIASIS
     Route: 058
     Dates: start: 20071015
  2. SYNTHROID [Concomitant]
  3. DITROPAN [Concomitant]
  4. ESTRACE [Concomitant]
  5. DIAZEPAM [Concomitant]

REACTIONS (2)
  - INJECTION SITE ERYTHEMA [None]
  - INJECTION SITE HAEMATOMA [None]
